FAERS Safety Report 23885104 (Version 1)
Quarter: 2024Q2

REPORT INFORMATION
  Report Type: Spontaneous
  Country: AU (occurrence: AU)
  Receive Date: 20240522
  Receipt Date: 20240522
  Transmission Date: 20240716
  Serious: Yes (Hospitalization)
  Sender: FDA-Public Use
  Company Number: AU-SUN PHARMACEUTICAL INDUSTRIES LTD-2024R1-447349

PATIENT
  Age: 49 Year
  Sex: Female

DRUGS (2)
  1. DOXORUBICIN [Suspect]
     Active Substance: DOXORUBICIN
     Indication: Chemotherapy
     Dosage: 126 MILLIGRAM
     Route: 065
     Dates: start: 20231106, end: 20231106
  2. netupitant ,palonosetron hydrochloride [Concomitant]
     Indication: Product used for unknown indication
     Dosage: UNK
     Route: 065

REACTIONS (6)
  - Chest pain [Recovered/Resolved]
  - Dizziness [Recovered/Resolved]
  - Dyspnoea [Recovered/Resolved]
  - Nausea [Recovered/Resolved]
  - Palpitations [Recovered/Resolved]
  - Anisocoria [Recovered/Resolved]

NARRATIVE: CASE EVENT DATE: 20231106
